FAERS Safety Report 4511693-2 (Version None)
Quarter: 2004Q4

REPORT INFORMATION
  Report Type: 
  Country: None (occurrence: None)
  Receive Date: 20041123
  Receipt Date: 20041123
  Transmission Date: 20050328
  Serious: Yes (Hospitalization)
  Sender: FDA-Public Use
  Company Number: None

PATIENT
  Sex: Male
  Weight: 64 kg

DRUGS (3)
  1. MIRTAZAPINE [Suspect]
     Indication: DEPRESSION
     Dosage: 15 MG HS ORAL
     Route: 048
     Dates: start: 20040915, end: 20040922
  2. NEURONTIN [Concomitant]
  3. TRAMADOL [Concomitant]

REACTIONS (5)
  - CONFUSIONAL STATE [None]
  - CONVULSION [None]
  - EYE ROLLING [None]
  - POSTICTAL STATE [None]
  - URINARY INCONTINENCE [None]
